FAERS Safety Report 20762240 (Version 1)
Quarter: 2022Q2

REPORT INFORMATION
  Report Type: Spontaneous
  Country: SK (occurrence: SK)
  Receive Date: 20220428
  Receipt Date: 20220428
  Transmission Date: 20220721
  Serious: Yes (Other)
  Sender: FDA-Public Use
  Company Number: SK-SA-SAC20220418000512

PATIENT
  Age: 66 Year
  Sex: Female

DRUGS (1)
  1. INSULIN GLARGINE [Suspect]
     Active Substance: INSULIN GLARGINE
     Indication: Diabetes mellitus
     Dosage: 30 INTERNATIONAL UNIT, UNKNOWN
     Route: 058
     Dates: start: 2019, end: 202001

REACTIONS (4)
  - Diabetes mellitus inadequate control [Recovered/Resolved]
  - Weight increased [Recovered/Resolved]
  - Body mass index increased [Recovered/Resolved]
  - Hypoglycaemia [Recovered/Resolved]
